FAERS Safety Report 22033323 (Version 1)
Quarter: 2023Q1

REPORT INFORMATION
  Report Type: Report from Study
  Country: CA (occurrence: CA)
  Receive Date: 20230224
  Receipt Date: 20230224
  Transmission Date: 20230417
  Serious: Yes (Hospitalization)
  Sender: FDA-Public Use
  Company Number: CA-ABBVIE-4296839

PATIENT
  Sex: Male

DRUGS (1)
  1. HUMIRA [Suspect]
     Active Substance: ADALIMUMAB
     Indication: Crohn^s disease
     Dosage: FORM STRENGTH: 40 MG
     Route: 058
     Dates: start: 20160807

REACTIONS (6)
  - Fistula [Unknown]
  - Fistula [Recovering/Resolving]
  - Stress [Unknown]
  - Crohn^s disease [Unknown]
  - Abscess [Unknown]
  - Pain [Unknown]
